FAERS Safety Report 11703668 (Version 2)
Quarter: 2015Q4

REPORT INFORMATION
  Report Type: Spontaneous
  Country: BR (occurrence: BR)
  Receive Date: 20151106
  Receipt Date: 20151208
  Transmission Date: 20160304
  Serious: Yes (Other)
  Sender: FDA-Public Use
  Company Number: BR-AMGEN-BRASP2015116244

PATIENT
  Age: 57 Year
  Sex: Male
  Weight: 59 kg

DRUGS (4)
  1. QUEIMALIVE [Concomitant]
     Dosage: UNK
  2. TORSILAX [Concomitant]
     Active Substance: ACETAMINOPHEN\CAFFEINE\CARISOPRODOL\DICLOFENAC
     Dosage: UNK
  3. ENBREL [Suspect]
     Active Substance: ETANERCEPT
     Indication: ANKYLOSING SPONDYLITIS
     Dosage: 50 MG, 1X/WEEK
     Route: 065
     Dates: start: 2001
  4. ENBREL [Suspect]
     Active Substance: ETANERCEPT
     Dosage: UNK , EVERY 20 DAYS
     Route: 065
     Dates: start: 2015

REACTIONS (4)
  - Speech disorder [Unknown]
  - Intentional product misuse [Not Recovered/Not Resolved]
  - Tumour rupture [Unknown]
  - Head and neck cancer [Unknown]

NARRATIVE: CASE EVENT DATE: 2015
